FAERS Safety Report 6480119-4 (Version None)
Quarter: 2009Q4

REPORT INFORMATION
  Report Type: 
  Country: None (occurrence: None)
  Receive Date: 20091208
  Receipt Date: 20091110
  Transmission Date: 20100525
  Serious: No
  Sender: FDA-Public Use
  Company Number: US-BAYER-200916822BCC

PATIENT
  Age: 66 Year
  Sex: Female
  Weight: 77 kg

DRUGS (2)
  1. ALEVE [Suspect]
     Indication: NERVE COMPRESSION
     Dosage: UNIT DOSE: 220 MG
     Route: 048
     Dates: start: 20091001
  2. ASPIRIN [Suspect]
     Indication: NERVE COMPRESSION
     Dosage: TOTAL DAILY DOSE: 1950 MG  UNIT DOSE: 325 MG
     Route: 048

REACTIONS (2)
  - NERVE COMPRESSION [None]
  - PAIN [None]
